FAERS Safety Report 5811661-4 (Version None)
Quarter: 2008Q3

REPORT INFORMATION
  Report Type: 
  Country: None (occurrence: None)
  Receive Date: 20080715
  Receipt Date: 20080715
  Transmission Date: 20090109
  Serious: No
  Sender: FDA-Public Use
  Company Number: None

PATIENT
  Sex: Female

DRUGS (3)
  1. HYDROXYZINE HCL [Suspect]
     Indication: PRURITUS
     Dosage: 1-2 TABLETS THREE TIMES PER DA PO
     Route: 048
     Dates: start: 20080702, end: 20080714
  2. ZYRTEC [Concomitant]
  3. YASMIN [Concomitant]

REACTIONS (2)
  - DRUG INEFFECTIVE [None]
  - PHARMACEUTICAL PRODUCT COMPLAINT [None]
